FAERS Safety Report 18998760 (Version 1)
Quarter: 2021Q1

REPORT INFORMATION
  Report Type: Spontaneous
  Country: DE (occurrence: DE)
  Receive Date: 20210312
  Receipt Date: 20210312
  Transmission Date: 20210420
  Serious: Yes (Other)
  Sender: FDA-Public Use
  Company Number: DE-ALKEM LABORATORIES LIMITED-DE-ALKEM-2018-09364

PATIENT
  Age: 21 Year
  Sex: Male
  Weight: 64 kg

DRUGS (11)
  1. CHOLECALCIFEROL [Suspect]
     Active Substance: CHOLECALCIFEROL
     Indication: PSEUDOHYPOPARATHYROIDISM
     Dosage: 0.05 MICROGRAM/KILOGRAM, QD
     Route: 065
  2. MAGNESIUM [Concomitant]
     Active Substance: MAGNESIUM
     Indication: PRODUCT USED FOR UNKNOWN INDICATION
     Dosage: UNK
     Route: 065
  3. ATENOLOL. [Concomitant]
     Active Substance: ATENOLOL
     Indication: PRODUCT USED FOR UNKNOWN INDICATION
     Dosage: UNK
     Route: 065
  4. AMLODIPINE [Concomitant]
     Active Substance: AMLODIPINE BESYLATE
     Indication: PRODUCT USED FOR UNKNOWN INDICATION
     Dosage: UNK
     Route: 065
  5. HYDROCHLOROTHIAZIDE. [Concomitant]
     Active Substance: HYDROCHLOROTHIAZIDE
     Indication: PRODUCT USED FOR UNKNOWN INDICATION
     Dosage: UNK
     Route: 065
  6. RAMIPRIL. [Concomitant]
     Active Substance: RAMIPRIL
     Indication: PRODUCT USED FOR UNKNOWN INDICATION
     Dosage: UNK
     Route: 065
  7. CINACALCET. [Suspect]
     Active Substance: CINACALCET
     Indication: PSEUDOHYPOPARATHYROIDISM
     Dosage: 30 MILLIGRAM, QD
     Route: 065
     Dates: start: 2005
  8. CINACALCET. [Suspect]
     Active Substance: CINACALCET
     Dosage: 30 MILLIGRAM, QD
     Route: 065
     Dates: start: 200703
  9. CALCITRIOL. [Concomitant]
     Active Substance: CALCITRIOL
     Indication: PRODUCT USED FOR UNKNOWN INDICATION
     Dosage: 0.5 MICROGRAM/KILOGRAM, QD
     Route: 065
  10. CALCITRIOL. [Concomitant]
     Active Substance: CALCITRIOL
     Dosage: 2.3 MICROGRAM/KILOGRAM, QD
     Route: 065
  11. DIHYDROTACHYSTEROL [Concomitant]
     Active Substance: DIHYDROTACHYSTEROL
     Indication: PRODUCT USED FOR UNKNOWN INDICATION
     Dosage: 0.7 MILLIGRAM, QD
     Route: 065

REACTIONS (8)
  - Hypercalciuria [Unknown]
  - Hypertension [Recovering/Resolving]
  - Hyperphosphataemia [Unknown]
  - Nephrocalcinosis [Recovering/Resolving]
  - Drug ineffective [Unknown]
  - Toxicity to various agents [Recovering/Resolving]
  - Hypocalcaemia [Unknown]
  - Off label use [Unknown]

NARRATIVE: CASE EVENT DATE: 2005
